FAERS Safety Report 12439318 (Version 1)
Quarter: 2016Q2

REPORT INFORMATION
  Report Type: Other
  Country: US (occurrence: US)
  Receive Date: 20160606
  Receipt Date: 20160606
  Transmission Date: 20160815
  Serious: Yes (Other)
  Sender: FDA-Public Use
  Company Number: US-COL_23054_2016

PATIENT
  Sex: Female

DRUGS (1)
  1. TOM^S OF MAINE NATURAL FLUORIDE-FREE TOOTHPASTE WITH PROPOLIS + MYRRH [Suspect]
     Active Substance: CALCIUM CARBONATE
     Indication: PRODUCT USED FOR UNKNOWN INDICATION
     Dosage: NI/NI/
     Route: 048

REACTIONS (3)
  - Maternal exposure during pregnancy [Unknown]
  - Internal haemorrhage [Not Recovered/Not Resolved]
  - Adverse event [Not Recovered/Not Resolved]
